FAERS Safety Report 15451563 (Version 1)
Quarter: 2018Q3

REPORT INFORMATION
  Report Type: Spontaneous
  Country: US (occurrence: US)
  Receive Date: 20180927
  Receipt Date: 20180927
  Transmission Date: 20181010
  Serious: Yes (Life-Threatening, Hospitalization, Other)
  Sender: FDA-Public Use
  Company Number: None

PATIENT
  Age: 58 Year
  Sex: Female
  Weight: 67.5 kg

DRUGS (1)
  1. VALSARTAN. GENERIC FOR DIOVAN [Suspect]
     Active Substance: VALSARTAN
     Indication: MITRAL VALVE PROLAPSE
     Dosage: ?          QUANTITY:1 TABLET(S);?
     Route: 048
     Dates: start: 20140924, end: 20180625

REACTIONS (4)
  - Tachycardia [None]
  - Joint swelling [None]
  - Dyspnoea [None]
  - Arrhythmia [None]

NARRATIVE: CASE EVENT DATE: 20180624
